FAERS Safety Report 22532389 (Version 9)
Quarter: 2024Q3

REPORT INFORMATION
  Report Type: Spontaneous
  Country: US (occurrence: US)
  Receive Date: 20230607
  Receipt Date: 20240730
  Transmission Date: 20241017
  Serious: Yes (Other)
  Sender: DAIICHI
  Company Number: US-DSJP-DSU-2023-122378

PATIENT
  Sex: Female

DRUGS (2)
  1. ENHERTU [Suspect]
     Active Substance: FAM-TRASTUZUMAB DERUXTECAN-NXKI
     Indication: HER2 positive breast cancer
     Dosage: 1.8 MG/KG
     Route: 065
     Dates: start: 2023, end: 202405
  2. ENHERTU [Suspect]
     Active Substance: FAM-TRASTUZUMAB DERUXTECAN-NXKI
     Indication: HER2 low breast cancer

REACTIONS (12)
  - Malignant neoplasm progression [Unknown]
  - Tumour marker decreased [Unknown]
  - Cancer with a high tumour mutational burden [Unknown]
  - Constipation [Unknown]
  - Influenza [Unknown]
  - Dyspepsia [Unknown]
  - Asthenia [Unknown]
  - Fatigue [Unknown]
  - Diarrhoea [Unknown]
  - Feeling abnormal [Unknown]
  - COVID-19 [Unknown]
  - Prescribed underdose [Not Recovered/Not Resolved]

NARRATIVE: CASE EVENT DATE: 20230101
